FAERS Safety Report 5752978-1 (Version None)
Quarter: 2008Q2

REPORT INFORMATION
  Report Type: 
  Country: None (occurrence: None)
  Receive Date: 20080527
  Receipt Date: 20080515
  Transmission Date: 20081010
  Serious: Yes (Hospitalization)
  Sender: FDA-Public Use
  Company Number: 062-C5013-08041565

PATIENT
  Age: 67 Year
  Sex: Male
  Weight: 76.2 kg

DRUGS (8)
  1. CC-5013 (LENALIDOMIDE) (CAPSULES) [Suspect]
     Indication: CHRONIC LYMPHOCYTIC LEUKAEMIA
     Dosage: 2.5 MG, DAILY, ORAL; 5 MG, DAILY, ORAL
     Route: 048
     Dates: start: 20080407, end: 20080504
  2. CC-5013 (LENALIDOMIDE) (CAPSULES) [Suspect]
     Indication: CHRONIC LYMPHOCYTIC LEUKAEMIA
     Dosage: 2.5 MG, DAILY, ORAL; 5 MG, DAILY, ORAL
     Route: 048
     Dates: start: 20080505
  3. VALTREX [Concomitant]
  4. ENOXAPARIN SODIUM [Concomitant]
  5. NASONEX [Concomitant]
  6. ALLOPURINOL [Concomitant]
  7. BACTRIM [Concomitant]
  8. TOREM (TORASEMIDE) [Concomitant]

REACTIONS (3)
  - PLATELET COUNT DECREASED [None]
  - PYREXIA [None]
  - TUMOUR FLARE [None]
